FAERS Safety Report 16933341 (Version 1)
Quarter: 2019Q4

REPORT INFORMATION
  Report Type: Spontaneous
  Country: US (occurrence: US)
  Receive Date: 20191018
  Receipt Date: 20191018
  Transmission Date: 20200122
  Serious: No
  Sender: FDA-Public Use
  Company Number: US-HORIZON-KRY-0866-2019

PATIENT
  Age: 6 Decade
  Sex: Male

DRUGS (2)
  1. COLCRYS [Concomitant]
     Active Substance: COLCHICINE
  2. KRYSTEXXA [Suspect]
     Active Substance: PEGLOTICASE
     Indication: PRODUCT USED FOR UNKNOWN INDICATION
     Dosage: 8MG Q2WEEKS
     Dates: start: 20190924

REACTIONS (1)
  - Gout [Not Recovered/Not Resolved]

NARRATIVE: CASE EVENT DATE: 20191011
